FAERS Safety Report 4361348-2 (Version None)
Quarter: 2004Q2

REPORT INFORMATION
  Report Type: 
  Country: None (occurrence: None)
  Receive Date: 20040521
  Receipt Date: 20040421
  Transmission Date: 20050107
  Serious: Yes (Hospitalization)
  Sender: FDA-Public Use
  Company Number: PHNR2004AU00919

PATIENT
  Sex: Female

DRUGS (1)
  1. CLOZARIL [Suspect]
     Indication: SCHIZOPHRENIA
     Dosage: 100 - 300 MG/DAY
     Dates: start: 20030228, end: 20040326

REACTIONS (3)
  - ASTHENIA [None]
  - FALL [None]
  - GAIT DISTURBANCE [None]
